FAERS Safety Report 10657295 (Version 1)
Quarter: 2014Q4

REPORT INFORMATION
  Report Type: Spontaneous
  Country: FR (occurrence: FR)
  Receive Date: 20141217
  Receipt Date: 20141217
  Transmission Date: 20150529
  Serious: Yes (Hospitalization)
  Sender: FDA-Public Use
  Company Number: FR-JNJFOC-20141204834

PATIENT
  Age: 93 Year
  Sex: Male
  Weight: 69 kg

DRUGS (10)
  1. DIFFU K [Concomitant]
     Active Substance: POTASSIUM CHLORIDE
     Route: 065
  2. KARDEGIC [Concomitant]
     Active Substance: ASPIRIN LYSINE
     Route: 065
  3. RANITAC [Concomitant]
     Dosage: 1/2 A DAY
     Route: 065
  4. AMIODARONE [Concomitant]
     Active Substance: AMIODARONE
     Route: 065
  5. XATRAL LP [Concomitant]
     Active Substance: ALFUZOSIN
     Route: 065
  6. PENTOXIFYLLINE. [Concomitant]
     Active Substance: PENTOXIFYLLINE
     Dosage: ALTERNATING BETWEEN 1/4 TABLET AND 1/2 TABLET
     Route: 065
  7. EBIXA [Concomitant]
     Active Substance: MEMANTINE HYDROCHLORIDE
     Route: 065
  8. DUROGESIC [Suspect]
     Active Substance: FENTANYL
     Indication: PRODUCT USED FOR UNKNOWN INDICATION
     Route: 062
     Dates: end: 201405
  9. MIANSERIN [Concomitant]
     Active Substance: MIANSERIN
     Route: 065
  10. AVODART [Concomitant]
     Active Substance: DUTASTERIDE
     Route: 065

REACTIONS (4)
  - Confusional state [Recovered/Resolved]
  - Inappropriate schedule of drug administration [Unknown]
  - Fall [Recovered/Resolved]
  - Oxygen saturation decreased [Unknown]

NARRATIVE: CASE EVENT DATE: 20140525
